FAERS Safety Report 9238228 (Version 1)
Quarter: 2013Q2

REPORT INFORMATION
  Report Type: Spontaneous
  Country: US (occurrence: None)
  Receive Date: 20130416
  Receipt Date: 20130416
  Transmission Date: 20140414
  Serious: Yes (Death)
  Sender: FDA-Public Use
  Company Number: 20130011

PATIENT
  Age: 52 Year
  Sex: Male

DRUGS (3)
  1. SUBSYS [Suspect]
     Indication: CANCER PAIN
     Route: 060
     Dates: start: 20121226
  2. PERCOCET [Concomitant]
  3. METHADONE [Concomitant]

REACTIONS (1)
  - Death [None]
